FAERS Safety Report 9034921 (Version 1)
Quarter: 2013Q1

REPORT INFORMATION
  Report Type: Report from Study
  Country: US (occurrence: US)
  Receive Date: 20130129
  Receipt Date: 20130129
  Transmission Date: 20140127
  Serious: No
  Sender: FDA-Public Use
  Company Number: US-ABBOTT-12P-163-0894052-00

PATIENT
  Age: 31 Year
  Sex: Female

DRUGS (2)
  1. HUMIRA 40 MG/0.8 ML PEN [Suspect]
     Indication: UVEITIS
     Dates: start: 201111
  2. HUMIRA 40 MG/0.8 ML PEN [Suspect]
     Indication: SARCOIDOSIS
     Dates: start: 201201

REACTIONS (4)
  - Injection site erythema [Not Recovered/Not Resolved]
  - Eye inflammation [Not Recovered/Not Resolved]
  - Injection site swelling [Unknown]
  - Injection site erythema [Unknown]
